FAERS Safety Report 6670327-1 (Version None)
Quarter: 2010Q2

REPORT INFORMATION
  Report Type: 
  Country: None (occurrence: None)
  Receive Date: 20100405
  Receipt Date: 20100326
  Transmission Date: 20101027
  Serious: Yes (Life-Threatening, Hospitalization)
  Sender: FDA-Public Use
  Company Number: 2010SP015080

PATIENT
  Age: 77 Year
  Sex: Female

DRUGS (8)
  1. MIRTAZAPINE [Suspect]
     Indication: MAJOR DEPRESSION
     Dosage: PO
     Route: 048
     Dates: start: 20091228, end: 20100124
  2. TRAMADOL HCL [Suspect]
     Indication: PAIN
     Dosage: PO
     Route: 048
     Dates: end: 20100124
  3. LITHIUM CARBONATE [Suspect]
     Indication: BIPOLAR DISORDER
     Dosage: PO
     Route: 048
     Dates: start: 20010101, end: 20100124
  4. PANTOPRAZOLE [Concomitant]
  5. CERIS [Concomitant]
  6. XALATAN [Concomitant]
  7. VALPROATE SODIUM [Concomitant]
  8. NOCTRAN [Concomitant]

REACTIONS (2)
  - COMA [None]
  - SEROTONIN SYNDROME [None]
